FAERS Safety Report 6925447-0 (Version None)
Quarter: 2010Q3

REPORT INFORMATION
  Report Type: 
  Country: None (occurrence: None)
  Receive Date: 20100816
  Receipt Date: 20100805
  Transmission Date: 20110219
  Serious: Yes (Life-Threatening, Other)
  Sender: FDA-Public Use
  Company Number: BR-ROCHE-712588

PATIENT
  Sex: Male
  Weight: 105.8 kg

DRUGS (8)
  1. TOCILIZUMAB [Suspect]
     Indication: RHEUMATOID ARTHRITIS
     Dosage: FORM: INFUSION, STARTING DOSE: 6 MG/KG
     Route: 042
     Dates: start: 20100420
  2. TOCILIZUMAB [Suspect]
     Route: 042
     Dates: start: 20100520
  3. TOCILIZUMAB [Suspect]
     Dosage: DOSE: 600/800 MG
     Route: 042
     Dates: start: 20100620, end: 20100624
  4. CYCLOPHOSPHAMIDE [Concomitant]
     Indication: RESPIRATORY FAILURE
     Route: 048
  5. CYCLOPHOSPHAMIDE [Concomitant]
     Route: 048
  6. OMEPRAZOLE [Concomitant]
  7. PREDSIM [Concomitant]
  8. PREDSIM [Concomitant]
     Dates: start: 20100101

REACTIONS (13)
  - ANAPHYLACTIC REACTION [None]
  - BLOOD PRESSURE INCREASED [None]
  - CHEST PAIN [None]
  - CHILLS [None]
  - CYANOSIS [None]
  - DYSPNOEA [None]
  - HAEMATURIA [None]
  - HYPERTHERMIA [None]
  - MYOCARDIAL INFARCTION [None]
  - OESOPHAGITIS [None]
  - PAIN IN EXTREMITY [None]
  - SINUS TACHYCARDIA [None]
  - TREMOR [None]
